FAERS Safety Report 11815270 (Version 1)
Quarter: 2015Q4

REPORT INFORMATION
  Report Type: Spontaneous
  Country: US (occurrence: US)
  Receive Date: 20151209
  Receipt Date: 20151209
  Transmission Date: 20160305
  Serious: No
  Sender: FDA-Public Use
  Company Number: US-SA-2015SA190932

PATIENT
  Sex: Female

DRUGS (3)
  1. SOLOSTAR [Concomitant]
     Active Substance: DEVICE
  2. LANTUS [Concomitant]
     Active Substance: INSULIN GLARGINE
     Dosage: DOSE:90 UNIT(S)
  3. TOUJEO [Suspect]
     Active Substance: INSULIN GLARGINE
     Indication: DIABETES MELLITUS
     Dosage: DOSE:90 UNIT(S)
     Route: 065

REACTIONS (1)
  - Blood glucose increased [Unknown]
